FAERS Safety Report 6286932-0 (Version None)
Quarter: 2009Q3

REPORT INFORMATION
  Report Type: 
  Country: None (occurrence: None)
  Receive Date: 20090724
  Receipt Date: 20090720
  Transmission Date: 20100115
  Serious: Yes (Other)
  Sender: FDA-Public Use
  Company Number: SPV1-2009-01305

PATIENT
  Sex: 0

DRUGS (1)
  1. FOSRENOL [Suspect]

REACTIONS (1)
  - SIGMOIDITIS [None]
